FAERS Safety Report 22649638 (Version 1)
Quarter: 2023Q2

REPORT INFORMATION
  Report Type: Spontaneous
  Country: US (occurrence: US)
  Receive Date: 20230628
  Receipt Date: 20230628
  Transmission Date: 20230721
  Serious: No
  Sender: FDA-Public Use
  Company Number: US-INCYTE CORPORATION-2023IN006528

PATIENT

DRUGS (5)
  1. JAKAFI [Suspect]
     Active Substance: RUXOLITINIB
     Indication: Acute lymphocytic leukaemia
     Dosage: 5 MILLIGRAM, BID
     Route: 048
     Dates: start: 202306
  2. JAKAFI [Suspect]
     Active Substance: RUXOLITINIB
     Indication: Acute lymphocytic leukaemia (in remission)
  3. MAGNESIUM [Concomitant]
     Active Substance: MAGNESIUM
     Indication: Product used for unknown indication
     Route: 065
  4. PANTOPRAZOLE [Concomitant]
     Active Substance: PANTOPRAZOLE
     Indication: Product used for unknown indication
     Route: 065
  5. SPRYCEL [Concomitant]
     Active Substance: DASATINIB
     Indication: Product used for unknown indication
     Route: 065

REACTIONS (2)
  - Oedema [Unknown]
  - Off label use [Unknown]

NARRATIVE: CASE EVENT DATE: 20230601
